FAERS Safety Report 18872300 (Version 1)
Quarter: 2021Q1

REPORT INFORMATION
  Report Type: Spontaneous
  Country: US (occurrence: US)
  Receive Date: 20210210
  Receipt Date: 20210210
  Transmission Date: 20210420
  Serious: No
  Sender: FDA-Public Use
  Company Number: None

PATIENT
  Age: 63 Year
  Sex: Male
  Weight: 83.25 kg

DRUGS (10)
  1. BAMLANIVIMAB. [Suspect]
     Active Substance: BAMLANIVIMAB
     Indication: COVID-19
     Dosage: ?          OTHER FREQUENCY:1 TIME DOSE;?
     Dates: start: 20210204, end: 20210204
  2. BISOPROLOL FUMARATE 5MG [Concomitant]
  3. ATORVASTATIN 40MG [Concomitant]
     Active Substance: ATORVASTATIN
  4. AMLODIPINE?BENAZEPRIL 5?10M [Concomitant]
  5. VIT C 1000MG [Concomitant]
  6. 81MG ASPIRIN [Concomitant]
  7. ICOSAPENT ETHYL 1GM [Concomitant]
  8. VIT D3 2000MG [Concomitant]
  9. COENZYME Q10 [Concomitant]
     Active Substance: DIETARY SUPPLEMENT\UBIDECARENONE
  10. METFORMIN [Concomitant]
     Active Substance: METFORMIN HYDROCHLORIDE

REACTIONS (8)
  - Body temperature increased [None]
  - Asthenia [None]
  - Pain [None]
  - Feeling abnormal [None]
  - Dyspnoea [None]
  - Fatigue [None]
  - Diarrhoea [None]
  - Heart rate increased [None]

NARRATIVE: CASE EVENT DATE: 20210204
